FAERS Safety Report 20724359 (Version 1)
Quarter: 2022Q2

REPORT INFORMATION
  Report Type: Spontaneous
  Country: US (occurrence: US)
  Receive Date: 20220419
  Receipt Date: 20220419
  Transmission Date: 20220720
  Serious: Yes (Other)
  Sender: FDA-Public Use
  Company Number: US-PFIZER INC-202200551176

PATIENT
  Age: 60 Year
  Sex: Male

DRUGS (2)
  1. TIKOSYN [Suspect]
     Active Substance: DOFETILIDE
     Indication: Atrial fibrillation
     Dosage: 500 UG, 2X/DAY (1 CAPSULE ORALLY TWICE A DAY/QUANTITY FOR 90 DAYS: 180)
     Route: 048
     Dates: start: 201606
  2. COUMADIN [Concomitant]
     Active Substance: WARFARIN SODIUM
     Dosage: UNK

REACTIONS (4)
  - Haematoma [Unknown]
  - Wound [Unknown]
  - Stress [Unknown]
  - Impaired work ability [Unknown]
